FAERS Safety Report 14158414 (Version 1)
Quarter: 2017Q4

REPORT INFORMATION
  Report Type: Report from Study
  Country: ES (occurrence: ES)
  Receive Date: 20171103
  Receipt Date: 20171103
  Transmission Date: 20180321
  Serious: Yes (Other)
  Sender: FDA-Public Use
  Company Number: ES-JNJFOC-20171034256

PATIENT
  Age: 90 Year
  Sex: Male

DRUGS (1)
  1. SIMPONI [Suspect]
     Active Substance: GOLIMUMAB
     Indication: RHEUMATOID ARTHRITIS
     Route: 058
     Dates: start: 20130225

REACTIONS (2)
  - Superinfection [Recovered/Resolved with Sequelae]
  - Bronchial obstruction [Recovered/Resolved with Sequelae]

NARRATIVE: CASE EVENT DATE: 20170511
